FAERS Safety Report 4367037-2 (Version None)
Quarter: 2004Q2

REPORT INFORMATION
  Report Type: 
  Country: None (occurrence: None)
  Receive Date: 20040524
  Receipt Date: 20040513
  Transmission Date: 20050107
  Serious: Yes (Hospitalization)
  Sender: FDA-Public Use
  Company Number: 2004IM000651

PATIENT
  Age: 64 Year
  Sex: Female

DRUGS (1)
  1. ACTIMMUNE [Suspect]
     Indication: ALVEOLITIS FIBROSING
     Dosage: 100 UG;TIW; SUBCUTANEOUS
     Route: 058
     Dates: start: 20021009, end: 20040423

REACTIONS (1)
  - AORTIC ANEURYSM [None]
